FAERS Safety Report 5710687-9 (Version None)
Quarter: 2008Q2

REPORT INFORMATION
  Report Type: 
  Country: None (occurrence: None)
  Receive Date: 20080420
  Receipt Date: 20080408
  Transmission Date: 20081010
  Serious: Yes (Disabling)
  Sender: FDA-Public Use
  Company Number: PHHO2008IT04698

PATIENT
  Age: 77 Year
  Sex: Female
  Weight: 85 kg

DRUGS (1)
  1. LETROZOLE [Suspect]
     Indication: BREAST CANCER
     Dosage: 2.5 MG, QD
     Route: 048
     Dates: start: 20070618, end: 20080225

REACTIONS (5)
  - CONCOMITANT DISEASE PROGRESSION [None]
  - EYE DEGENERATIVE DISORDER [None]
  - EYE OEDEMA [None]
  - MACULAR DEGENERATION [None]
  - VISUAL ACUITY REDUCED [None]
